FAERS Safety Report 18913000 (Version 1)
Quarter: 2021Q1

REPORT INFORMATION
  Report Type: Spontaneous
  Country: US (occurrence: US)
  Receive Date: 20210218
  Receipt Date: 20210218
  Transmission Date: 20210420
  Serious: Yes (Other)
  Sender: FDA-Public Use
  Company Number: US-NOVEN PHARMACEUTICALS, INC.-2020US009374

PATIENT
  Age: 15 Year
  Sex: Male

DRUGS (2)
  1. DAYTRANA [Suspect]
     Active Substance: METHYLPHENIDATE
     Indication: ATTENTION DEFICIT HYPERACTIVITY DISORDER
     Dosage: 10 MG
     Route: 062
     Dates: start: 20200626, end: 2020
  2. DAYTRANA [Suspect]
     Active Substance: METHYLPHENIDATE
     Dosage: 20 MG
     Route: 062
     Dates: start: 20200805, end: 20200805

REACTIONS (6)
  - Application site acne [Recovered/Resolved]
  - Device difficult to use [Recovered/Resolved]
  - Product adhesion issue [Recovered/Resolved]
  - Product administration error [Recovered/Resolved]
  - Device issue [Recovered/Resolved]
  - Application site rash [Recovered/Resolved]

NARRATIVE: CASE EVENT DATE: 2020
